FAERS Safety Report 18364498 (Version 4)
Quarter: 2022Q3

REPORT INFORMATION
  Report Type: Report from Study
  Country: AU (occurrence: AU)
  Receive Date: 20201009
  Receipt Date: 20220924
  Transmission Date: 20221027
  Serious: Yes (Other)
  Sender: FDA-Public Use
  Company Number: NVSC2020AU265034

PATIENT
  Sex: Female

DRUGS (6)
  1. NILOTINIB [Suspect]
     Active Substance: NILOTINIB
     Indication: Chronic myeloid leukaemia
     Dosage: UNK
     Route: 065
     Dates: start: 20110930, end: 20111030
  2. DASATINIB [Suspect]
     Active Substance: DASATINIB
     Indication: Chronic myeloid leukaemia
     Dosage: UNK
     Route: 065
     Dates: start: 20110730
  3. DASATINIB [Suspect]
     Active Substance: DASATINIB
     Dosage: 20 MG, QOD
     Route: 065
  4. DASATINIB [Suspect]
     Active Substance: DASATINIB
     Dosage: 40 MG, QD
     Route: 065
     Dates: end: 20200617
  5. ASCIMINIB [Suspect]
     Active Substance: ASCIMINIB
     Indication: Tyrosine kinase mutation
     Dosage: 1 DF, BID
     Route: 048
  6. ASCIMINIB [Suspect]
     Active Substance: ASCIMINIB
     Indication: Chronic myeloid leukaemia

REACTIONS (9)
  - Brain stem ischaemia [Unknown]
  - Hepatotoxicity [Unknown]
  - Jaundice [Unknown]
  - Hepatic enzyme abnormal [Unknown]
  - Blood bilirubin increased [Unknown]
  - Demyelinating polyneuropathy [Unknown]
  - Ataxia [Not Recovered/Not Resolved]
  - Cytogenetic analysis abnormal [Unknown]
  - Drug intolerance [Unknown]
